FAERS Safety Report 9467813 (Version 1)
Quarter: 2013Q3

REPORT INFORMATION
  Report Type: Spontaneous
  Country: US (occurrence: US)
  Receive Date: 20130821
  Receipt Date: 20130821
  Transmission Date: 20140515
  Serious: No
  Sender: FDA-Public Use
  Company Number: US-009507513-1308USA007066

PATIENT
  Age: 55 Year
  Sex: Female

DRUGS (4)
  1. REBETOL [Suspect]
     Indication: HEPATITIS C
     Dosage: UNK
     Dates: start: 19900101, end: 19901001
  2. REBETOL [Suspect]
     Dosage: UNK
     Dates: start: 20130813
  3. INTRONA [Suspect]
     Indication: HEPATITIS C
     Dosage: UNK
     Dates: start: 19900101, end: 19901001
  4. PEGINTRON [Suspect]
     Indication: HEPATITIS C
     Dosage: REDIPEN, UNK
     Dates: start: 20130813

REACTIONS (14)
  - Hepatitis C [Unknown]
  - Gastrooesophageal reflux disease [Unknown]
  - Hypertension [Unknown]
  - Influenza like illness [Unknown]
  - Arthralgia [Unknown]
  - Headache [Unknown]
  - Insomnia [Unknown]
  - Abdominal pain upper [Unknown]
  - Palpitations [Unknown]
  - Chest discomfort [Unknown]
  - Aphagia [Unknown]
  - Chills [Unknown]
  - Nausea [Unknown]
  - Depression [Unknown]
